FAERS Safety Report 4843758-X (Version None)
Quarter: 2005Q4

REPORT INFORMATION
  Report Type: 
  Country: None (occurrence: None)
  Receive Date: 20051129
  Receipt Date: 20051122
  Transmission Date: 20060501
  Serious: Yes (Hospitalization)
  Sender: FDA-Public Use
  Company Number: 203643

PATIENT
  Age: 62 Year
  Sex: Female

DRUGS (9)
  1. HERCEPTIN [Suspect]
     Indication: BREAST CANCER
     Dosage: 360 MG/KG, SINGLE, INTRAVENOUS
     Route: 042
     Dates: start: 20031111, end: 20031111
  2. TAXOTERE [Suspect]
     Indication: BREAST CANCER
     Dosage: 180 MG, Q3W, INTRAVENOUS
     Route: 042
     Dates: start: 20031112, end: 20031112
  3. CYCLOPHOSPHAMIDE [Concomitant]
  4. DOXORUBICIN HCL [Concomitant]
  5. CIPROFLOXACIN [Concomitant]
  6. DEGAN (METOCLOPRAMIDE HYDROCHLORIDE) [Concomitant]
  7. TROPISTRON HYDROCHLORIDE (TROPISETRON HYDROCHLORIDE) [Concomitant]
  8. DEXAMETHASONE [Concomitant]
  9. ACETAMINOPHEN [Concomitant]

REACTIONS (6)
  - ARTHRALGIA [None]
  - BRONCHOPNEUMONIA [None]
  - CHILLS [None]
  - NEUTROPENIC INFECTION [None]
  - PHARYNGITIS [None]
  - RHINITIS [None]
